FAERS Safety Report 5480052-0 (Version None)
Quarter: 2007Q4

REPORT INFORMATION
  Report Type: 
  Country: None (occurrence: None)
  Receive Date: 20071008
  Receipt Date: 20070926
  Transmission Date: 20080405
  Serious: Yes (Life-Threatening, Hospitalization)
  Sender: FDA-Public Use
  Company Number: DE-PFIZER INC-2007077985

PATIENT
  Sex: Female
  Weight: 95 kg

DRUGS (14)
  1. SU-011,248 [Suspect]
     Indication: BREAST CANCER METASTATIC
     Route: 048
     Dates: start: 20070727, end: 20070913
  2. CAPECITABINE [Suspect]
     Indication: BREAST CANCER METASTATIC
     Route: 048
  3. VITAMIN B6 [Concomitant]
     Route: 048
  4. LOPERAMIDE HYDROCHLORIDE [Concomitant]
     Route: 048
  5. PASPERTIN [Concomitant]
     Route: 048
  6. TEGRETOL [Concomitant]
     Route: 048
  7. LYRICA [Concomitant]
     Route: 048
  8. ARCOXIA [Concomitant]
     Route: 048
  9. PANTOPRAZOLE SODIUM [Concomitant]
     Route: 048
  10. LEVOTHYROXINE SODIUM [Concomitant]
     Route: 048
  11. DEXAMETHASONE 0.5MG TAB [Concomitant]
     Route: 048
  12. LAMOTRIGINE [Concomitant]
     Route: 048
  13. KEPPRA [Concomitant]
     Route: 048
  14. ENOXAPARIN SODIUM [Concomitant]
     Route: 030
     Dates: start: 20070401, end: 20070911

REACTIONS (2)
  - ERYSIPELAS [None]
  - PELVIC VENOUS THROMBOSIS [None]
